FAERS Safety Report 25930640 (Version 3)
Quarter: 2025Q4

REPORT INFORMATION
  Report Type: Spontaneous
  Country: US (occurrence: US)
  Receive Date: 20251016
  Receipt Date: 20251208
  Transmission Date: 20260117
  Serious: No
  Sender: PFIZER
  Company Number: US-PFIZER INC-202500203691

PATIENT
  Age: 15 Year
  Sex: Female
  Weight: 53.98 kg

DRUGS (1)
  1. GENOTROPIN [Suspect]
     Active Substance: SOMATROPIN
     Dosage: 2.2 MG, DAILY

REACTIONS (4)
  - Device use error [Unknown]
  - Expired device used [Unknown]
  - Device breakage [Unknown]
  - Device mechanical issue [Unknown]
